FAERS Safety Report 8344444 (Version 4)
Quarter: 2014Q4

REPORT INFORMATION
  Report Type: Spontaneous
  Country: US (occurrence: US)
  Receive Date: 20120119
  Receipt Date: 20141231
  Transmission Date: 20150529
  Serious: Yes (Hospitalization, Other)
  Sender: FDA-Public Use
  Company Number: US-ASTRAZENECA-2012SE02765

PATIENT
  Age: 63 Year
  Sex: Female
  Weight: 72.6 kg

DRUGS (18)
  1. CRESTOR [Suspect]
     Active Substance: ROSUVASTATIN CALCIUM
     Indication: HYPERLIPIDAEMIA
     Route: 048
     Dates: start: 2011, end: 2013
  2. CRESTOR [Suspect]
     Active Substance: ROSUVASTATIN CALCIUM
     Indication: HYPERLIPIDAEMIA
     Dosage: 20 MG EVERY 3 OR 4 DAYS
     Route: 048
     Dates: start: 2013
  3. CRESTOR [Suspect]
     Active Substance: ROSUVASTATIN CALCIUM
     Indication: BLOOD CHOLESTEROL ABNORMAL
     Dosage: 20 MG EVERY 3 OR 4 DAYS
     Route: 048
     Dates: start: 2013
  4. TRIMACINOLONE [Concomitant]
     Dosage: 1 APP TOPICAL TWO TIMES A DAY
     Route: 061
  5. LORATADINE. [Concomitant]
     Active Substance: LORATADINE
     Indication: RHINORRHOEA
  6. SINGULAIR [Concomitant]
     Active Substance: MONTELUKAST SODIUM
     Indication: BRONCHITIS
  7. VASELINE PURE [Concomitant]
     Active Substance: PETROLATUM
  8. ATENOLOL\CHLOR [Suspect]
     Active Substance: ATENOLOL\HYDROCHLOROTHIAZIDE
     Indication: HYPERTENSION
     Dosage: 100-25 MG DAILY
     Route: 048
  9. ASPIRIN. [Concomitant]
     Active Substance: ASPIRIN
     Route: 048
  10. CALCIUM+D [Concomitant]
     Dosage: CALCIUM 600+D 600 MG-200 UNITS DAILY
     Route: 048
  11. OMEPRAZOLE. [Suspect]
     Active Substance: OMEPRAZOLE
     Indication: ULCER HAEMORRHAGE
     Route: 048
     Dates: start: 2011
  12. ACETAMINOPHEN-CODINE [Concomitant]
     Indication: PAIN
     Dosage: 300 MG-30 MG 1-2 EVERY 4 HOURS AS REQUIRED
     Route: 048
  13. CRESTOR [Suspect]
     Active Substance: ROSUVASTATIN CALCIUM
     Indication: BLOOD CHOLESTEROL ABNORMAL
     Route: 048
     Dates: start: 2011, end: 2013
  14. POTASSIUM KLOR-CON [Concomitant]
     Indication: HYPERTENSION
     Dosage: M20 TAB DAILY
     Route: 048
  15. DULERA [Concomitant]
     Active Substance: FORMOTEROL FUMARATE DIHYDRATE\MOMETASONE FUROATE
     Dosage: 200 MCG-5MCG/INHALATION: 2PUFFS INHALATION TWO TIMES A DAY
  16. ATENOLOL\CHLOR [Suspect]
     Active Substance: ATENOLOL\HYDROCHLOROTHIAZIDE
     Indication: BLOOD PRESSURE ABNORMAL
     Dosage: 100-25 MG DAILY
     Route: 048
  17. ZYRTEC [Concomitant]
     Active Substance: CETIRIZINE HYDROCHLORIDE
     Indication: RHINORRHOEA
  18. NEOSPORIN [Concomitant]
     Active Substance: BACITRACIN ZINC\NEOMYCIN SULFATE\POLYMYXIN B SULFATE

REACTIONS (13)
  - Blood cholesterol abnormal [Unknown]
  - Pain in extremity [Not Recovered/Not Resolved]
  - Sneezing [Unknown]
  - Cataract [Recovered/Resolved]
  - Nasal discomfort [Unknown]
  - Fatigue [Unknown]
  - Cholelithiasis [Unknown]
  - Intentional product misuse [Not Recovered/Not Resolved]
  - Ulcer haemorrhage [Recovered/Resolved]
  - Rhinorrhoea [Unknown]
  - Flatulence [Not Recovered/Not Resolved]
  - Visual impairment [Unknown]
  - Pruritus [Unknown]

NARRATIVE: CASE EVENT DATE: 2011
